FAERS Safety Report 25891467 (Version 1)
Quarter: 2025Q4

REPORT INFORMATION
  Report Type: Other
  Country: CA (occurrence: CA)
  Receive Date: 20251007
  Receipt Date: 20251007
  Transmission Date: 20260118
  Serious: Yes (Other)
  Sender: INCYTE
  Company Number: CA-002147023-NVSC2025CA152641

PATIENT
  Age: 75 Year

DRUGS (2)
  1. RUXOLITINIB [Suspect]
     Active Substance: RUXOLITINIB
     Indication: Vitiligo
     Dosage: UNK UNK, BID (2 EVERY 1 DAYS)
     Route: 065
  2. TACROLIMUS [Concomitant]
     Active Substance: TACROLIMUS
     Indication: Product used for unknown indication
     Dosage: UNK
     Route: 065

REACTIONS (5)
  - Metastases to liver [Unknown]
  - Metastases to lymph nodes [Unknown]
  - Metastases to skin [Unknown]
  - Neoplasm malignant [Unknown]
  - Pulmonary mass [Unknown]
